FAERS Safety Report 8558114-0 (Version None)
Quarter: 2012Q3

REPORT INFORMATION
  Report Type: 
  Country: None (occurrence: None)
  Receive Date: 20120801
  Receipt Date: 20120724
  Transmission Date: 20120928
  Serious: Yes (Hospitalization, Other)
  Sender: FDA-Public Use
  Company Number: US-ABBOTT-12P-163-0933892-00

PATIENT
  Sex: Female
  Weight: 52.664 kg

DRUGS (22)
  1. PREDNISONE [Concomitant]
     Indication: PRODUCT USED FOR UNKNOWN INDICATION
     Dosage: COMPLETELY OFF AND WILL TRY TO KEEP OFF TAPER DOWN
  2. PREDNISONE [Concomitant]
     Dosage: DAILY
  3. MULTI-VITAMINS [Concomitant]
     Indication: PRODUCT USED FOR UNKNOWN INDICATION
  4. HUMIRA [Suspect]
     Dates: start: 20120430
  5. CHOLESTYRAMINE [Concomitant]
     Indication: PRODUCT USED FOR UNKNOWN INDICATION
     Dosage: 1 SCOOP TWICE DAILY(1GRAMDAILY)
  6. PREVACID [Concomitant]
     Indication: PRODUCT USED FOR UNKNOWN INDICATION
     Dosage: DAILY
  7. POTASSIUM [Concomitant]
     Indication: PRODUCT USED FOR UNKNOWN INDICATION
  8. VITAMIN B-12 [Concomitant]
     Indication: PRODUCT USED FOR UNKNOWN INDICATION
     Route: 030
  9. TRIAMTERENE AND HYDROCHLOROTHIAZIDE [Concomitant]
     Indication: PRODUCT USED FOR UNKNOWN INDICATION
     Dosage: 1 DAILY
  10. LEVOTHYROXINE SODIUM [Concomitant]
     Indication: PRODUCT USED FOR UNKNOWN INDICATION
     Dosage: DAILY
  11. VITAMIN D [Concomitant]
     Indication: PRODUCT USED FOR UNKNOWN INDICATION
  12. CALCIUM CARBONATE [Concomitant]
     Indication: PRODUCT USED FOR UNKNOWN INDICATION
  13. COZAAR [Concomitant]
     Indication: PRODUCT USED FOR UNKNOWN INDICATION
     Dosage: DAILY
  14. GLUCOSAMINE [Concomitant]
     Indication: PRODUCT USED FOR UNKNOWN INDICATION
  15. IMODIUM [Concomitant]
     Indication: PRODUCT USED FOR UNKNOWN INDICATION
  16. ANUCORT-HC [Concomitant]
     Indication: PRODUCT USED FOR UNKNOWN INDICATION
     Dosage: AT NIGHT IN PLACE OF PROTOCORT
  17. CHOLESTYRAMINE [Concomitant]
     Dosage: 1 SCOOP TWICE DAILY
  18. CHOLESTYRAMINE [Concomitant]
  19. HUMIRA [Suspect]
     Indication: CROHN'S DISEASE
     Route: 058
     Dates: start: 20070101, end: 20120430
  20. ZYRTEC [Concomitant]
     Indication: PRODUCT USED FOR UNKNOWN INDICATION
     Dosage: DAILY
  21. ATENOLOL [Concomitant]
     Indication: PRODUCT USED FOR UNKNOWN INDICATION
     Dosage: DAILY
  22. PROTOCORT [Concomitant]
     Indication: PRODUCT USED FOR UNKNOWN INDICATION
     Dosage: AT NIGHT
     Route: 054

REACTIONS (33)
  - CROHN'S DISEASE [None]
  - IMMUNOSUPPRESSION [None]
  - HYPERTENSION [None]
  - GASTROINTESTINAL OEDEMA [None]
  - FAECAL INCONTINENCE [None]
  - FIBROSIS [None]
  - MALABSORPTION [None]
  - CONSTIPATION [None]
  - ABDOMINAL ADHESIONS [None]
  - FLATULENCE [None]
  - INTESTINAL STENOSIS [None]
  - DIVERTICULITIS [None]
  - INTESTINAL MUCOSAL HYPERTROPHY [None]
  - SMALL INTESTINAL STENOSIS [None]
  - INTESTINAL ULCER [None]
  - INTUSSUSCEPTION [None]
  - CHOLELITHIASIS [None]
  - SMALL INTESTINAL BACTERIAL OVERGROWTH [None]
  - EYE PRURITUS [None]
  - SCAR [None]
  - DEFAECATION URGENCY [None]
  - DIARRHOEA [None]
  - HAEMORRHOIDS [None]
  - VISCERAL CONGESTION [None]
  - ENTERITIS [None]
  - INTESTINAL DILATATION [None]
  - HYPERADRENALISM [None]
  - INTESTINAL OBSTRUCTION [None]
  - COLONIC STENOSIS [None]
  - HIATUS HERNIA [None]
  - GASTROINTESTINAL INFLAMMATION [None]
  - ANORECTAL STENOSIS [None]
  - FATIGUE [None]
